FAERS Safety Report 9837580 (Version 1)
Quarter: 2014Q1

REPORT INFORMATION
  Report Type: Spontaneous
  Country: US (occurrence: None)
  Receive Date: 20140117
  Receipt Date: 20140117
  Transmission Date: 20141002
  Serious: Yes (Disabling)
  Sender: FDA-Public Use
  Company Number: None

PATIENT
  Age: 47 Year
  Sex: Female
  Weight: 74.84 kg

DRUGS (1)
  1. OXYMETAZOLINE HCL [Suspect]
     Indication: DRUG ADMINISTRATION ERROR
     Dosage: 1 SPARY  AS NEEDED NASAL SPRAY
     Route: 045
     Dates: start: 20140101, end: 20140116

REACTIONS (9)
  - Drug dependence [None]
  - Sinus headache [None]
  - Rhinalgia [None]
  - Nasal congestion [None]
  - Sinusitis [None]
  - Product quality issue [None]
  - Product colour issue [None]
  - Product quality issue [None]
  - Product substitution issue [None]
